FAERS Safety Report 8845782 (Version 1)
Quarter: 2012Q4

REPORT INFORMATION
  Report Type: 
  Country: US (occurrence: US)
  Receive Date: 20121017
  Receipt Date: 20121017
  Transmission Date: 20130627
  Serious: Yes (Hospitalization)
  Sender: FDA-Public Use
  Company Number: US-ELI_LILLY_AND_COMPANY-US201210003107

PATIENT
  Sex: Female

DRUGS (3)
  1. HUMALOG LISPRO [Suspect]
     Indication: DIABETES MELLITUS
     Dosage: 7 u, tid
     Dates: start: 2002
  2. HUMALOG LISPRO [Suspect]
     Dosage: 7 u, tid
  3. LEVEMIR [Concomitant]

REACTIONS (4)
  - Liver transplant [Recovered/Resolved]
  - Hip fracture [Unknown]
  - Fall [Unknown]
  - Gait disturbance [Not Recovered/Not Resolved]
